FAERS Safety Report 10039576 (Version 1)
Quarter: 2014Q1

REPORT INFORMATION
  Report Type: Spontaneous
  Country: US (occurrence: US)
  Receive Date: 20140326
  Receipt Date: 20140326
  Transmission Date: 20141002
  Serious: Yes (Other)
  Sender: FDA-Public Use
  Company Number: US-DENDREON CORPORATION-2014PROUSA03593

PATIENT
  Age: 56 Year
  Sex: Male

DRUGS (5)
  1. PROVENGE [Suspect]
     Indication: PROSTATE CANCER METASTATIC
     Dosage: 250 ML, SINGLE
     Route: 042
     Dates: start: 20140303, end: 20140303
  2. PROVENGE [Suspect]
     Dosage: 250 ML, SINGLE
     Route: 042
     Dates: start: 20140317, end: 20140317
  3. BENADRYL [Concomitant]
     Indication: PREMEDICATION
     Dosage: 50 MG, SINGLE
  4. PEPCID [Concomitant]
     Indication: PREMEDICATION
  5. TYLENOL [Concomitant]
     Indication: PREMEDICATION

REACTIONS (2)
  - Bradycardia [Recovering/Resolving]
  - Blood pressure systolic decreased [Recovering/Resolving]
